FAERS Safety Report 7307508-X (Version None)
Quarter: 2011Q1

REPORT INFORMATION
  Report Type: 
  Country: None (occurrence: None)
  Receive Date: 20110223
  Receipt Date: 20110217
  Transmission Date: 20110831
  Serious: Yes (Hospitalization)
  Sender: FDA-Public Use
  Company Number: US-BRISTOL-MYERS SQUIBB COMPANY-15556012

PATIENT
  Age: 47 Year
  Sex: Female
  Weight: 50 kg

DRUGS (1)
  1. ERBITUX [Suspect]
     Indication: HEAD AND NECK CANCER
     Dosage: WEEK 8 TREAT15FEB11,LOADING DOSE:624MG WEEK BEFORE,NO OF COURSES:8
     Dates: start: 20101229, end: 20110208

REACTIONS (4)
  - ORAL PAIN [None]
  - DEHYDRATION [None]
  - STOMATITIS [None]
  - DYSPHAGIA [None]
